FAERS Safety Report 9804272 (Version 1)
Quarter: 2014Q1

REPORT INFORMATION
  Report Type: Spontaneous
  Country: GB (occurrence: GB)
  Receive Date: 20140108
  Receipt Date: 20140108
  Transmission Date: 20141002
  Serious: Yes (Other)
  Sender: FDA-Public Use
  Company Number: GB-B.I. PHARMACEUTICALS,INC./RIDGEFIELD-2014-BI-00706UK

PATIENT
  Age: 77 Year
  Sex: Male
  Weight: 83 kg

DRUGS (5)
  1. PRADAXA [Suspect]
     Indication: PULMONARY EMBOLISM
     Dosage: 30 MG
     Route: 048
     Dates: start: 20131111
  2. PRADAXA [Suspect]
     Dosage: 20 MG
     Route: 048
     Dates: end: 20131220
  3. AMITRIPTYLINE [Concomitant]
     Dates: start: 20080723
  4. SIMVASTATIN [Concomitant]
     Dates: start: 20080611
  5. TAMSULOSIN [Concomitant]
     Dates: start: 20080611

REACTIONS (5)
  - Infarction [Unknown]
  - Splinter haemorrhages [Unknown]
  - Thrombocytopenia [Not Recovered/Not Resolved]
  - Vasculitis [Not Recovered/Not Resolved]
  - Pain in extremity [Unknown]
